FAERS Safety Report 18624840 (Version 1)
Quarter: 2020Q4

REPORT INFORMATION
  Report Type: Spontaneous
  Country: US (occurrence: US)
  Receive Date: 20201216
  Receipt Date: 20201216
  Transmission Date: 20210114
  Serious: Yes (Other)
  Sender: FDA-Public Use
  Company Number: US-IGSA-BIG0012399

PATIENT
  Sex: Female
  Weight: 74 kg

DRUGS (2)
  1. THROMBATE III [Suspect]
     Active Substance: ANTITHROMBIN III HUMAN
     Dosage: UNK UNK, B.I.WK.
     Dates: start: 201603
  2. THROMBATE III [Suspect]
     Active Substance: ANTITHROMBIN III HUMAN
     Indication: ANTITHROMBIN III DEFICIENCY
     Dosage: 4228 UNITED STATES PHARMACOPEIA UNIT, B.I.WK.
     Dates: start: 20201106, end: 20201117

REACTIONS (2)
  - Drug ineffective [Recovered/Resolved]
  - Transient ischaemic attack [Recovered/Resolved]
